FAERS Safety Report 26126361 (Version 1)
Quarter: 2025Q4

REPORT INFORMATION
  Report Type: Report from Study
  Country: US (occurrence: US)
  Receive Date: 20251205
  Receipt Date: 20251205
  Transmission Date: 20260118
  Serious: Yes (Other)
  Sender: APELLIS PHARMACEUTICALS
  Company Number: US-APELLIS-2025-APL-0002338

PATIENT

DRUGS (1)
  1. SYFOVRE [Suspect]
     Active Substance: PEGCETACOPLAN
     Indication: Dry age-related macular degeneration
     Dosage: 15MG EVERY 28 DAYS BILATERAL
     Route: 031
     Dates: start: 20230706

REACTIONS (7)
  - Optic neuritis [Not Recovered/Not Resolved]
  - Vitreous floaters [Not Recovered/Not Resolved]
  - Eye inflammation [Recovering/Resolving]
  - Eye inflammation [Recovering/Resolving]
  - Blindness [Unknown]
  - Impaired driving ability [Unknown]
  - Impaired quality of life [Unknown]
